FAERS Safety Report 6150869-8 (Version None)
Quarter: 2009Q2

REPORT INFORMATION
  Report Type: 
  Country: None (occurrence: None)
  Receive Date: 20090408
  Receipt Date: 20090326
  Transmission Date: 20091009
  Serious: Yes (Other)
  Sender: FDA-Public Use
  Company Number: 232576K09USA

PATIENT
  Age: 42 Year
  Sex: Female
  Weight: 116 kg

DRUGS (4)
  1. REBIF [Suspect]
     Indication: MULTIPLE SCLEROSIS
     Dosage: 44 MCG, 3 IN 1 WEEKS
     Dates: start: 20081004
  2. UNSPECIFIED MUSCLE SPASMS MEDICATIONS (ALL OTHER THERAPEUTIC PRODUCTS) [Concomitant]
  3. BYETTA [Concomitant]
  4. GLUCOPHAGE [Concomitant]

REACTIONS (2)
  - FOCAL SEGMENTAL GLOMERULOSCLEROSIS [None]
  - HYPERTENSION [None]
